FAERS Safety Report 24036129 (Version 2)
Quarter: 2024Q3

REPORT INFORMATION
  Report Type: Report from Study
  Country: DE (occurrence: DE)
  Receive Date: 20240701
  Receipt Date: 20240712
  Transmission Date: 20241016
  Serious: No
  Sender: TG THERAPEUTICS
  Company Number: DE-TG THERAPEUTICS INC.-TGT003737

PATIENT

DRUGS (2)
  1. UBLITUXIMAB [Suspect]
     Active Substance: UBLITUXIMAB
     Indication: Relapsing multiple sclerosis
     Dosage: 150 MILLIGRAM
     Route: 042
     Dates: start: 20240625, end: 20240625
  2. CHOLECALCIFEROL [Concomitant]
     Active Substance: CHOLECALCIFEROL
     Indication: Multiple sclerosis
     Dosage: 20000 UNK
     Route: 048
     Dates: start: 20240611

REACTIONS (1)
  - Infusion related reaction [Recovered/Resolved]

NARRATIVE: CASE EVENT DATE: 20240625
